FAERS Safety Report 24985418 (Version 1)
Quarter: 2025Q1

REPORT INFORMATION
  Report Type: Spontaneous
  Country: IN (occurrence: IN)
  Receive Date: 20250219
  Receipt Date: 20250219
  Transmission Date: 20250408
  Serious: Yes (Other)
  Sender: MYLAN
  Company Number: IN-MYLANLABS-2025M1013522

PATIENT
  Age: 49 Year
  Sex: Male

DRUGS (3)
  1. BEDAQUILINE [Suspect]
     Active Substance: BEDAQUILINE
     Indication: Pulmonary tuberculosis
     Route: 065
  2. PRETOMANID [Suspect]
     Active Substance: PRETOMANID
     Indication: Pulmonary tuberculosis
     Route: 065
  3. LINEZOLID [Concomitant]
     Active Substance: LINEZOLID
     Indication: Pulmonary tuberculosis
     Route: 065

REACTIONS (1)
  - Hypercalcaemia [Recovered/Resolved]
